FAERS Safety Report 7716375-1 (Version None)
Quarter: 2011Q3

REPORT INFORMATION
  Report Type: 
  Country: None (occurrence: None)
  Receive Date: 20110829
  Receipt Date: 20110822
  Transmission Date: 20111222
  Serious: Yes (Hospitalization, Disabling)
  Sender: FDA-Public Use
  Company Number: US-MERCK-1105USA03432

PATIENT
  Age: 51 Year
  Sex: Female

DRUGS (3)
  1. FOSAMAX [Suspect]
     Indication: OSTEOPOROSIS
     Route: 048
     Dates: start: 20000425, end: 20090506
  2. FOSAMAX [Suspect]
     Indication: OSTEOPENIA
     Route: 048
     Dates: start: 20000425, end: 20090506
  3. HORMONES (UNSPECIFIED) [Concomitant]
     Route: 065
     Dates: start: 19970101, end: 20010101

REACTIONS (8)
  - GASTROOESOPHAGEAL REFLUX DISEASE [None]
  - FEMUR FRACTURE [None]
  - HAEMORRHAGE [None]
  - LOW TURNOVER OSTEOPATHY [None]
  - DEVICE FAILURE [None]
  - HYPERTENSION [None]
  - DIABETES MELLITUS [None]
  - ADVERSE EVENT [None]
